FAERS Safety Report 7065757-2 (Version None)
Quarter: 2010Q4

REPORT INFORMATION
  Report Type: 
  Country: None (occurrence: None)
  Receive Date: 20101027
  Receipt Date: 20101022
  Transmission Date: 20110411
  Serious: Yes (Other)
  Sender: FDA-Public Use
  Company Number: PHHY2010DE71737

PATIENT
  Sex: Male

DRUGS (1)
  1. EXTAVIA [Suspect]
     Dosage: 250 UG/ML, 1 ML
     Route: 058
     Dates: start: 20100101

REACTIONS (2)
  - FALL [None]
  - HAND FRACTURE [None]
